FAERS Safety Report 24997490 (Version 4)
Quarter: 2025Q2

REPORT INFORMATION
  Report Type: Report from Study
  Country: US (occurrence: US)
  Receive Date: 20250222
  Receipt Date: 20250529
  Transmission Date: 20250717
  Serious: Yes (Other)
  Sender: ABBVIE
  Company Number: US-ABBVIE-6142544

PATIENT
  Age: 70 Year
  Sex: Male
  Weight: 65.77 kg

DRUGS (1)
  1. CREON [Suspect]
     Active Substance: PANCRELIPASE AMYLASE\PANCRELIPASE LIPASE\PANCRELIPASE PROTEASE
     Indication: Pancreatic failure
     Route: 048
     Dates: start: 20241108

REACTIONS (14)
  - Gangrene [Not Recovered/Not Resolved]
  - Liver disorder [Not Recovered/Not Resolved]
  - Weight decreased [Unknown]
  - Hepatic cancer [Not Recovered/Not Resolved]
  - Decreased appetite [Unknown]
  - Pancreatic carcinoma metastatic [Unknown]
  - Fatigue [Unknown]
  - Malaise [Unknown]
  - Mood swings [Unknown]
  - Hypophagia [Unknown]
  - Muscular weakness [Unknown]
  - Neuropathy peripheral [Unknown]
  - Paraesthesia [Unknown]
  - Asthenia [Not Recovered/Not Resolved]

NARRATIVE: CASE EVENT DATE: 20250101
